FAERS Safety Report 7651850-X (Version None)
Quarter: 2011Q3

REPORT INFORMATION
  Report Type: 
  Country: None (occurrence: None)
  Receive Date: 20110803
  Receipt Date: 20110727
  Transmission Date: 20111222
  Serious: Yes (Hospitalization)
  Sender: FDA-Public Use
  Company Number: US-BIOGENIDEC-2009BI002969

PATIENT
  Age: 52 Year
  Sex: Female
  Weight: 49 kg

DRUGS (2)
  1. AVONEX [Suspect]
     Indication: MULTIPLE SCLEROSIS
     Route: 030
     Dates: start: 20060901, end: 20080401
  2. GABAPENTIN [Concomitant]
     Indication: MULTIPLE SCLEROSIS
     Dates: start: 20060101

REACTIONS (8)
  - CYSTITIS [None]
  - GENERAL SYMPTOM [None]
  - MOBILITY DECREASED [None]
  - DYSARTHRIA [None]
  - PARAESTHESIA [None]
  - MULTIPLE SCLEROSIS RELAPSE [None]
  - CENTRAL NERVOUS SYSTEM LESION [None]
  - MULTIPLE SCLEROSIS [None]
